FAERS Safety Report 19868373 (Version 1)
Quarter: 2021Q3

REPORT INFORMATION
  Report Type: Report from Study
  Country: DE (occurrence: DE)
  Receive Date: 20210921
  Receipt Date: 20210921
  Transmission Date: 20211014
  Serious: Yes (Other)
  Sender: FDA-Public Use
  Company Number: DE-SERVIER-S21002660

PATIENT

DRUGS (5)
  1. PEGASPARGASE [Suspect]
     Active Substance: PEGASPARGASE
     Indication: PRECURSOR T-LYMPHOBLASTIC LYMPHOMA/LEUKAEMIA
     Dosage: 2000 IU/M2 (3480 IU)
     Route: 042
     Dates: start: 20190718, end: 20190718
  2. PEGASPARGASE [Suspect]
     Active Substance: PEGASPARGASE
     Dosage: 1000 IU/M2 (1725 IU)
     Route: 042
     Dates: start: 20191211, end: 20191211
  3. PEGASPARGASE [Suspect]
     Active Substance: PEGASPARGASE
     Dosage: 1000 IU/M2 (1725 IU)
     Route: 042
     Dates: start: 20200409, end: 20200507
  4. PEGASPARGASE [Suspect]
     Active Substance: PEGASPARGASE
     Dosage: 500 IU/M2 (900 IU)
     Route: 042
     Dates: start: 20200209, end: 20200209
  5. PEGASPARGASE [Suspect]
     Active Substance: PEGASPARGASE
     Dosage: 500 IU/M2 (900 IU)
     Route: 042
     Dates: start: 20191023, end: 20191106

REACTIONS (1)
  - Osteonecrosis [Recovering/Resolving]

NARRATIVE: CASE EVENT DATE: 20210301
